FAERS Safety Report 7894281-X (Version None)
Quarter: 2011Q4

REPORT INFORMATION
  Report Type: 
  Country: None (occurrence: None)
  Receive Date: 20111104
  Receipt Date: 20111031
  Transmission Date: 20120403
  Serious: Yes (Death)
  Sender: FDA-Public Use
  Company Number: JP-ROCHE-GNE324258

PATIENT
  Age: 82 Year
  Sex: Male

DRUGS (5)
  1. RANIBIZUMAB [Suspect]
     Indication: AGE-RELATED MACULAR DEGENERATION
     Dosage: 0.05 ML, UNKNOWN
     Route: 050
     Dates: start: 20090508
  2. RANIBIZUMAB [Suspect]
     Dosage: 0.05 ML, UNKNOWN
     Route: 050
     Dates: start: 20090605
  3. RANIBIZUMAB [Suspect]
     Dosage: 0.05 ML, UNKNOWN
     Route: 050
     Dates: start: 20090703
  4. RANIBIZUMAB [Suspect]
     Dosage: 0.05 ML, UNKNOWN
     Route: 050
     Dates: start: 20100205
  5. LEVOFLOXACIN [Concomitant]
     Indication: PRODUCT USED FOR UNKNOWN INDICATION
     Dosage: UNK
     Dates: start: 20090501, end: 20100201

REACTIONS (1)
  - DEATH [None]
